FAERS Safety Report 7516330-0 (Version None)
Quarter: 2011Q2

REPORT INFORMATION
  Report Type: 
  Country: None (occurrence: None)
  Receive Date: 20110601
  Receipt Date: 20110527
  Transmission Date: 20111010
  Serious: Yes (Hospitalization, Disabling, Other)
  Sender: FDA-Public Use
  Company Number: US-PFIZER INC-2011115481

PATIENT
  Sex: Male
  Weight: 88.435 kg

DRUGS (2)
  1. DEPAKOTE [Concomitant]
     Indication: DEPRESSION
     Dosage: UNK
  2. GEODON [Suspect]
     Indication: DEPRESSION
     Dosage: 80 MG, 1X/DAY
     Route: 048
     Dates: start: 20091101

REACTIONS (3)
  - PULMONARY THROMBOSIS [None]
  - DEPRESSION [None]
  - SUICIDAL IDEATION [None]
